FAERS Safety Report 7796186-1 (Version None)
Quarter: 2011Q4

REPORT INFORMATION
  Report Type: 
  Country: None (occurrence: None)
  Receive Date: 20111004
  Receipt Date: 20110919
  Transmission Date: 20120403
  Serious: Yes (Other)
  Sender: FDA-Public Use
  Company Number: GB-WATSON-2011-15761

PATIENT
  Age: 11 Year
  Sex: Male

DRUGS (2)
  1. CYCLOPHOSPHAMIDE [Suspect]
     Indication: IMMUNOSUPPRESSION
     Route: 042
  2. PREDNISOLONE [Suspect]
     Indication: IMMUNOSUPPRESSION
     Dosage: 1 MG/KG (UP TO 60 MG); DOSES REDUCED TO 10 MG/DAY FOR THE FIRST 6MOS
     Route: 048

REACTIONS (6)
  - INFERTILITY [None]
  - HERPES ZOSTER [None]
  - DEPRESSION [None]
  - SKIN BACTERIAL INFECTION [None]
  - CUSHING'S SYNDROME [None]
  - DIARRHOEA [None]
